FAERS Safety Report 7222271-9 (Version None)
Quarter: 2011Q1

REPORT INFORMATION
  Report Type: 
  Country: None (occurrence: None)
  Receive Date: 20110112
  Receipt Date: 20110105
  Transmission Date: 20110831
  Serious: Yes (Hospitalization, Disabling)
  Sender: FDA-Public Use
  Company Number: US-MERCK-1012USA00865

PATIENT
  Age: 65 Year
  Sex: Female
  Weight: 88 kg

DRUGS (10)
  1. COREG [Concomitant]
     Indication: ATRIAL FIBRILLATION
     Route: 048
  2. QUINAPRIL HYDROCHLORIDE [Concomitant]
     Route: 048
  3. PROPRANOLOL HYDROCHLORIDE [Suspect]
     Route: 065
  4. FUROSEMIDE [Concomitant]
     Route: 065
  5. METFORMIN [Concomitant]
     Indication: TYPE 2 DIABETES MELLITUS
     Route: 048
  6. GLYBURIDE [Concomitant]
     Route: 065
  7. ZOCOR [Suspect]
     Indication: HYPERLIPIDAEMIA
     Route: 048
     Dates: end: 20101130
  8. COREG [Concomitant]
     Indication: CARDIAC FAILURE CONGESTIVE
     Route: 048
  9. ZETIA [Suspect]
     Indication: HYPERLIPIDAEMIA
     Route: 048
     Dates: end: 20101201
  10. BYETTA [Concomitant]
     Indication: DIABETES MELLITUS
     Route: 058

REACTIONS (2)
  - RHABDOMYOLYSIS [None]
  - URINARY CASTS [None]
